FAERS Safety Report 25658477 (Version 2)
Quarter: 2025Q3

REPORT INFORMATION
  Report Type: Spontaneous
  Country: US (occurrence: US)
  Receive Date: 20250808
  Receipt Date: 20250820
  Transmission Date: 20251020
  Serious: No
  Sender: ABBVIE
  Company Number: US-ABBVIE-6401899

PATIENT
  Sex: Male

DRUGS (2)
  1. LINZESS [Suspect]
     Active Substance: LINACLOTIDE
     Indication: Irritable bowel syndrome
     Route: 048
     Dates: end: 202508
  2. LINZESS [Suspect]
     Active Substance: LINACLOTIDE
     Indication: Irritable bowel syndrome
     Route: 048

REACTIONS (4)
  - Hypoaesthesia [Unknown]
  - Diarrhoea [Unknown]
  - Constipation [Unknown]
  - Rectal haemorrhage [Unknown]
